FAERS Safety Report 9094663 (Version 1)
Quarter: 2013Q1

REPORT INFORMATION
  Report Type: Spontaneous
  Country: US (occurrence: US)
  Receive Date: 20130219
  Receipt Date: 20130219
  Transmission Date: 20140127
  Serious: No
  Sender: FDA-Public Use
  Company Number: US-009507513-1302USA007378

PATIENT
  Sex: 0

DRUGS (2)
  1. EMEND FOR INJECTION [Suspect]
     Dosage: 150 MG, DAY 1
     Route: 042
  2. CISPLATIN [Concomitant]

REACTIONS (1)
  - Nausea [Unknown]
